FAERS Safety Report 20732509 (Version 1)
Quarter: 2022Q2

REPORT INFORMATION
  Report Type: Spontaneous
  Country: US (occurrence: US)
  Receive Date: 20220420
  Receipt Date: 20220420
  Transmission Date: 20220721
  Serious: No
  Sender: FDA-Public Use
  Company Number: US-ELI_LILLY_AND_COMPANY-US202204009112

PATIENT
  Age: 68 Year
  Sex: Female

DRUGS (7)
  1. TRULICITY [Suspect]
     Active Substance: DULAGLUTIDE
     Indication: Product used for unknown indication
     Dosage: 0.75 MG, WEEKLY (1/W)
     Route: 058
     Dates: start: 202204
  2. LEVEMIR [Concomitant]
     Active Substance: INSULIN DETEMIR
     Indication: Product used for unknown indication
     Dosage: 47 U, BID
     Route: 065
  3. LEVEMIR [Concomitant]
     Active Substance: INSULIN DETEMIR
     Dosage: 30 U, BID (CURRENTLY)
     Route: 065
  4. NOVOLIN R [Concomitant]
     Active Substance: INSULIN HUMAN
     Indication: Product used for unknown indication
     Dosage: 120 U, EACH MORNING
     Route: 065
  5. NOVOLIN R [Concomitant]
     Active Substance: INSULIN HUMAN
     Dosage: 92 U, OTHER (AFTERNOON)
  6. NOVOLIN R [Concomitant]
     Active Substance: INSULIN HUMAN
     Dosage: 100 U, EACH MORNING (CURRENT)
     Route: 065
  7. NOVOLIN R [Concomitant]
     Active Substance: INSULIN HUMAN
     Dosage: 82 U, OTHER (AFTERNOON/ LUNCH)
     Route: 065

REACTIONS (2)
  - Incorrect dose administered [Unknown]
  - Inappropriate schedule of product administration [Unknown]

NARRATIVE: CASE EVENT DATE: 20220418
